FAERS Safety Report 5451300-8 (Version None)
Quarter: 2007Q3

REPORT INFORMATION
  Report Type: 
  Country: None (occurrence: None)
  Receive Date: 20070911
  Receipt Date: 20070911
  Transmission Date: 20080115
  Serious: Yes (Hospitalization, Other)
  Sender: FDA-Public Use
  Company Number: None

PATIENT
  Age: 74 Year
  Sex: Male
  Weight: 79.3795 kg

DRUGS (2)
  1. LUPRON [Suspect]
     Indication: PROSTATIC SPECIFIC ANTIGEN
     Dates: start: 19990901, end: 20030730
  2. CASODEX [Suspect]

REACTIONS (7)
  - CEREBROVASCULAR ACCIDENT [None]
  - DEPRESSION [None]
  - GOITRE [None]
  - HYPERHIDROSIS [None]
  - HYPERTENSION [None]
  - NERVOUS SYSTEM DISORDER [None]
  - PAIN [None]
